FAERS Safety Report 20760810 (Version 2)
Quarter: 2022Q2

REPORT INFORMATION
  Report Type: Spontaneous
  Country: US (occurrence: US)
  Receive Date: 20220428
  Receipt Date: 20220524
  Transmission Date: 20220721
  Serious: No
  Sender: FDA-Public Use
  Company Number: US-TEVA-2022-US-2024236

PATIENT
  Sex: Male

DRUGS (1)
  1. AMPHETAMINE SULFATE\DEXTROAMPHETAMINE [Interacting]
     Active Substance: AMPHETAMINE SULFATE\DEXTROAMPHETAMINE
     Indication: Attention deficit hyperactivity disorder
     Dosage: 30 MILLIGRAM DAILY; 3 PER DAY

REACTIONS (5)
  - Somnolence [Unknown]
  - Depression [Unknown]
  - Drug ineffective [Unknown]
  - Dysgeusia [Unknown]
  - Drug chemical incompatibility [Unknown]
